FAERS Safety Report 11707052 (Version 1)
Quarter: 2015Q4

REPORT INFORMATION
  Report Type: Spontaneous
  Country: US (occurrence: US)
  Receive Date: 20151104
  Receipt Date: 20151104
  Transmission Date: 20160304
  Serious: No
  Sender: FDA-Public Use
  Company Number: US-ELI_LILLY_AND_COMPANY-US201102003734

PATIENT
  Age: 81 Year
  Sex: Female

DRUGS (1)
  1. FORTEO [Suspect]
     Active Substance: TERIPARATIDE
     Indication: OSTEOPOROSIS
     Dosage: 20 UG, DAILY (1/D)
     Route: 065

REACTIONS (8)
  - Constipation [Unknown]
  - Decreased appetite [Unknown]
  - Gastrointestinal motility disorder [Unknown]
  - Painful defaecation [Unknown]
  - Nausea [Unknown]
  - Intentional product misuse [Unknown]
  - Haemorrhage [Unknown]
  - Faecaloma [Unknown]
